FAERS Safety Report 7781084-X (Version None)
Quarter: 2011Q3

REPORT INFORMATION
  Report Type: 
  Country: None (occurrence: None)
  Receive Date: 20110927
  Receipt Date: 20110922
  Transmission Date: 20111222
  Serious: Yes (Death)
  Sender: FDA-Public Use
  Company Number: PHHY2011MA84342

PATIENT
  Age: 90 Year
  Sex: Male

DRUGS (1)
  1. AMLODIPINE BESYLATE/VALSARTAN [Suspect]

REACTIONS (1)
  - MYOCARDIAL INFARCTION [None]
